FAERS Safety Report 20545830 (Version 4)
Quarter: 2024Q2

REPORT INFORMATION
  Report Type: Spontaneous
  Country: US (occurrence: US)
  Receive Date: 20220303
  Receipt Date: 20240614
  Transmission Date: 20240715
  Serious: Yes (Disabling, Other)
  Sender: FDA-Public Use
  Company Number: US-ORGANON-O2203USA000198

PATIENT
  Sex: Male

DRUGS (26)
  1. SINGULAIR [Suspect]
     Active Substance: MONTELUKAST SODIUM
     Indication: Asthma
     Dosage: 10 MILLIGRAM
     Route: 048
     Dates: start: 2003, end: 2020
  2. SINGULAIR [Suspect]
     Active Substance: MONTELUKAST SODIUM
     Indication: Hypersensitivity
     Dosage: 1 DOSAGE FORM, QD, EVERY EVENING
     Route: 048
     Dates: start: 20190219, end: 20190520
  3. SINGULAIR [Suspect]
     Active Substance: MONTELUKAST SODIUM
     Indication: Dyspnoea
     Dosage: 1 DOSAGE FORM, QD, EVERY EVENING
     Route: 048
     Dates: start: 20181106, end: 20190204
  4. SINGULAIR [Suspect]
     Active Substance: MONTELUKAST SODIUM
     Dosage: 1 DOSAGE FORM, QD, EVERY EVENING
     Route: 048
     Dates: start: 20160721, end: 20170722
  5. SINGULAIR [Suspect]
     Active Substance: MONTELUKAST SODIUM
     Dosage: 1 DOSAGE FORM, TAKE ONE TABLET BY MOUTH AT BEDTIME FOR BREATHING
     Route: 048
     Dates: start: 20121213, end: 20131214
  6. SINGULAIR [Suspect]
     Active Substance: MONTELUKAST SODIUM
     Dosage: 1 DOSAGE FORM, TAKE ONE TABLET BY MOUTH AT BEDTIME FOR BREATHING
     Route: 048
     Dates: start: 20100823, end: 20110824
  7. SINGULAIR [Suspect]
     Active Substance: MONTELUKAST SODIUM
     Dosage: 1 DOSAGE FORM, TAKE ONE TABLET BY MOUTH AT BEDTIME FOR BREATHING
     Route: 048
     Dates: start: 20090622, end: 20100623
  8. SINGULAIR [Suspect]
     Active Substance: MONTELUKAST SODIUM
     Dosage: 1 DOSAGE FORM, TAKE ONE TABLET BY MOUTH AT BEDTIME FOR BREATHING
     Route: 048
     Dates: start: 20080612, end: 20090613
  9. SINGULAIR [Suspect]
     Active Substance: MONTELUKAST SODIUM
     Dosage: 1 DOSAGE FORM, TAKE ONE TABLET BY MOUTH AT BEDTIME FOR BREATHING
     Route: 048
     Dates: start: 20070227, end: 20070329
  10. SINGULAIR [Suspect]
     Active Substance: MONTELUKAST SODIUM
     Dosage: 1 DOSAGE FORM, TAKE ONE TABLET BY MOUTH AT BEDTIME FOR BREATHING
     Route: 048
     Dates: start: 20070117, end: 20070216
  11. SINGULAIR [Suspect]
     Active Substance: MONTELUKAST SODIUM
     Dosage: 1 DOSAGE FORM, TAKE ONE TABLET BY MOUTH AT BEDTIME
     Route: 048
     Dates: start: 20040714, end: 20050715
  12. DOXYCYCLINE [Concomitant]
     Active Substance: DOXYCYCLINE\DOXYCYCLINE HYCLATE
     Indication: Infection
     Dosage: 1 DOSAGE FORM, BID
     Route: 048
     Dates: start: 20190819, end: 20190918
  13. DOXYCYCLINE [Concomitant]
     Active Substance: DOXYCYCLINE\DOXYCYCLINE HYCLATE
     Dosage: 1 DOSAGE FORM, BID
     Route: 048
     Dates: start: 20140327, end: 20140426
  14. ERGOCALCIFEROL [Concomitant]
     Active Substance: ERGOCALCIFEROL
     Indication: Vitamin D
     Dosage: 1 DOSAGE FORM, QW
     Route: 048
     Dates: start: 20190208, end: 20190509
  15. CHOLECALCIFEROL [Concomitant]
     Active Substance: CHOLECALCIFEROL
     Indication: Vitamin D
     Dosage: 1 DOSAGE FORM, QW
     Route: 048
     Dates: start: 20190503
  16. PNEUMOCOCCAL 13-VALENT CONJUGATE VACCINE [Concomitant]
     Active Substance: PNEUMOCOCCAL 13-VALENT CONJUGATE VACCINE
     Dosage: 0.5 MILLILITER
     Dates: start: 20190220, end: 20190221
  17. HYDROCHLOROTHIAZIDE [Concomitant]
     Active Substance: HYDROCHLOROTHIAZIDE
     Dosage: ONE HALF EVERY MORNING BY MOUTH
     Route: 048
  18. LEVOFLOXACIN [Concomitant]
     Active Substance: LEVOFLOXACIN
     Dosage: 1 DOSAGE FORM, QD, BY MOUTH , ONCE A DAY 2 HOURS APART FROM  FOOD/DAIRY/SUPPLEMENTS UNTIL FINISHED (
     Route: 048
     Dates: start: 20170703, end: 20170802
  19. KETOROLAC [Concomitant]
     Active Substance: KETOROLAC TROMETHAMINE
     Dosage: 30MG/1ML
     Route: 030
     Dates: start: 20170703, end: 20170704
  20. DIPHENHYDRAMINE [Concomitant]
     Active Substance: DIPHENHYDRAMINE
     Dosage: 25MG/O.5ML
     Dates: start: 20170703, end: 20170704
  21. AZITHROMYCIN [Concomitant]
     Active Substance: AZITHROMYCIN
     Dosage: 2 DOSAGE FORM, QD
     Route: 048
     Dates: start: 20131120, end: 20131220
  22. PRAZOSIN HYDROCHLORIDE [Concomitant]
     Active Substance: PRAZOSIN HYDROCHLORIDE
     Dosage: UNK
     Dates: start: 20101023, end: 20111024
  23. LISINOPRIL [Concomitant]
     Active Substance: LISINOPRIL
     Dosage: TAKE ONE-HALF TABLET BY MOUTH EVERY MORNING
     Route: 048
     Dates: start: 20101023, end: 20111024
  24. ALKALOL [Concomitant]
     Dosage: 2 DOSAGE FORM, 4 TIMES A DAY
     Dates: start: 20080617, end: 20090618
  25. LEVALBUTEROL HYDROCHLORIDE [Concomitant]
     Active Substance: LEVALBUTEROL HYDROCHLORIDE
     Dosage: 2 DOSAGE FORM
     Dates: start: 20060421, end: 20070422
  26. SALMETEROL [Concomitant]
     Active Substance: SALMETEROL
     Dosage: 1 DOSAGE FORM, BID
     Dates: start: 20040714, end: 20050715

REACTIONS (15)
  - Neuropsychological symptoms [Not Recovered/Not Resolved]
  - Obsessive-compulsive disorder [Recovering/Resolving]
  - Sleep disorder [Recovering/Resolving]
  - Anxiety disorder [Not Recovered/Not Resolved]
  - Suicidal ideation [Not Recovered/Not Resolved]
  - Hallucination [Recovered/Resolved]
  - Paranoia [Not Recovered/Not Resolved]
  - Social avoidant behaviour [Recovering/Resolving]
  - Mood swings [Not Recovered/Not Resolved]
  - Anger [Not Recovered/Not Resolved]
  - Homicidal ideation [Not Recovered/Not Resolved]
  - Nightmare [Not Recovered/Not Resolved]
  - Depression [Recovering/Resolving]
  - Irritability [Recovering/Resolving]
  - Agitation [Unknown]

NARRATIVE: CASE EVENT DATE: 20030101
